FAERS Safety Report 9606847 (Version 2)
Quarter: 2013Q4

REPORT INFORMATION
  Report Type: Spontaneous
  Country: US (occurrence: US)
  Receive Date: 20131008
  Receipt Date: 20131008
  Transmission Date: 20140711
  Serious: No
  Sender: FDA-Public Use
  Company Number: US-AMGEN-USASP2013052725

PATIENT
  Age: 68 Year
  Sex: Female
  Weight: 77.1 kg

DRUGS (1)
  1. PROLIA [Suspect]
     Indication: OSTEOPOROSIS
     Dosage: UNK UNK, Q6MO
     Route: 030
     Dates: start: 20120814

REACTIONS (2)
  - Incorrect route of drug administration [Unknown]
  - Bone pain [Recovered/Resolved]
